FAERS Safety Report 8171171 (Version 6)
Quarter: 2021Q1

REPORT INFORMATION
  Report Type: Spontaneous
  Country: GB (occurrence: GB)
  Receive Date: 20111006
  Receipt Date: 20210211
  Transmission Date: 20210420
  Serious: Yes (Life-Threatening, Hospitalization, Disabling, Other)
  Sender: FDA-Public Use
  Company Number: GB-JNJFOC-20110905897

PATIENT
  Age: 27 Year
  Sex: Female
  Weight: 63.5 kg

DRUGS (18)
  1. TRAMADOL HYDROCHLORIDE. [Suspect]
     Active Substance: TRAMADOL HYDROCHLORIDE
     Indication: NECK PAIN
     Dosage: 100 MG, 4/DAY
     Route: 065
     Dates: start: 20080722
  2. TRAMADOL HYDROCHLORIDE. [Suspect]
     Active Substance: TRAMADOL HYDROCHLORIDE
     Route: 048
     Dates: start: 20081201, end: 20101210
  3. MIRTAZAPINE. [Suspect]
     Active Substance: MIRTAZAPINE
     Indication: DEPRESSION
     Route: 048
     Dates: start: 20100923, end: 20101108
  4. QUETIAPINE. [Suspect]
     Active Substance: QUETIAPINE
     Indication: PSYCHOTIC DISORDER
     Route: 048
     Dates: start: 20110224, end: 20110506
  5. AMITRIPTYLINE [Suspect]
     Active Substance: AMITRIPTYLINE
     Indication: NEURALGIA
  6. CLONAZEPAM. [Suspect]
     Active Substance: CLONAZEPAM
     Indication: SEDATION
     Route: 048
     Dates: start: 20110224, end: 20110410
  7. AMITRIPTYLINE [Suspect]
     Active Substance: AMITRIPTYLINE
     Indication: MUSCLE SPASMS
     Route: 065
     Dates: start: 20110810
  8. CODEINE [Suspect]
     Active Substance: CODEINE
     Indication: ANALGESIC THERAPY
     Route: 048
     Dates: start: 20110615, end: 20110723
  9. CODEINE [Suspect]
     Active Substance: CODEINE
     Route: 065
     Dates: start: 2002
  10. SEROXAT [Interacting]
     Active Substance: PAROXETINE HYDROCHLORIDE
     Indication: PRODUCT USED FOR UNKNOWN INDICATION
     Route: 048
     Dates: start: 19990801, end: 201105
  11. DOMPERIDONE [Suspect]
     Active Substance: DOMPERIDONE
     Indication: PRODUCT USED FOR UNKNOWN INDICATION
     Route: 065
  12. PAROXETINE. [Interacting]
     Active Substance: PAROXETINE
     Indication: DEPRESSION
     Route: 048
     Dates: start: 19990801, end: 20110706
  13. CODEINE [Suspect]
     Active Substance: CODEINE
     Route: 065
     Dates: start: 2008
  14. PROCYCLIDINE [Suspect]
     Active Substance: PROCYCLIDINE
     Indication: EXTRAPYRAMIDAL DISORDER
     Route: 048
     Dates: start: 20110503, end: 20110510
  15. LORAZEPAM. [Suspect]
     Active Substance: LORAZEPAM
     Indication: SEDATION
     Route: 065
     Dates: start: 20110523, end: 20110627
  16. DIAZEPAM. [Suspect]
     Active Substance: DIAZEPAM
     Indication: MUSCLE SPASMS
     Route: 065
     Dates: start: 20110725
  17. OMEPRAZOLE. [Suspect]
     Active Substance: OMEPRAZOLE
     Indication: DYSPEPSIA
     Route: 065
     Dates: start: 20110525
  18. PAROXETINE. [Interacting]
     Active Substance: PAROXETINE
     Indication: POST-TRAUMATIC STRESS DISORDER

REACTIONS (45)
  - Depersonalisation/derealisation disorder [Recovered/Resolved]
  - Urinary retention [Unknown]
  - Delirium [Unknown]
  - Anxiety [Unknown]
  - Nightmare [Unknown]
  - Asthenia [Unknown]
  - Drug interaction [Unknown]
  - Tachycardia [Unknown]
  - Eye pain [Unknown]
  - Restlessness [Unknown]
  - Visual impairment [Unknown]
  - Hyperhidrosis [Unknown]
  - Paraesthesia [Unknown]
  - Serotonin syndrome [Not Recovered/Not Resolved]
  - Drug withdrawal syndrome [Unknown]
  - H1N1 influenza [Unknown]
  - Pallor [Unknown]
  - Confusional state [Unknown]
  - Arthralgia [Unknown]
  - Swollen tongue [Unknown]
  - Cyanosis [Unknown]
  - Muscle rigidity [Unknown]
  - Cogwheel rigidity [Unknown]
  - Blood sodium decreased [Unknown]
  - Contusion [Unknown]
  - Toxicity to various agents [Unknown]
  - Speech disorder [Unknown]
  - Agitation [Unknown]
  - Illness [Unknown]
  - Suicidal ideation [Not Recovered/Not Resolved]
  - Vomiting [Unknown]
  - Hallucination [Unknown]
  - Fatigue [Unknown]
  - Seizure [Unknown]
  - Mood swings [Unknown]
  - Incontinence [Unknown]
  - Pyrexia [Unknown]
  - Headache [Unknown]
  - Paralysis [Unknown]
  - Feeling of body temperature change [Unknown]
  - Depression [Unknown]
  - Muscle spasms [Unknown]
  - Dizziness [Unknown]
  - Dystonia [Unknown]
  - Sleep disorder [Unknown]

NARRATIVE: CASE EVENT DATE: 2008
